FAERS Safety Report 15348227 (Version 1)
Quarter: 2018Q3

REPORT INFORMATION
  Report Type: Spontaneous
  Country: US (occurrence: US)
  Receive Date: 20180829
  Receipt Date: 20180829
  Transmission Date: 20181010
  Serious: Yes (Hospitalization)
  Sender: FDA-Public Use
  Company Number: None

PATIENT
  Sex: Male

DRUGS (7)
  1. ASPIRIN 81MG [Concomitant]
     Active Substance: ASPIRIN
  2. METFORMIN 500MG [Concomitant]
     Active Substance: METFORMIN HYDROCHLORIDE
  3. LANTUS SOLOSTAR [Concomitant]
     Active Substance: INSULIN GLARGINE
  4. LISINOPRIL. [Concomitant]
     Active Substance: LISINOPRIL
  5. IMATINIB [Suspect]
     Active Substance: IMATINIB
     Indication: SOFT TISSUE NEOPLASM
     Route: 048
     Dates: start: 20170624
  6. FERROUS SULFATE 325MG [Concomitant]
     Active Substance: FERROUS SULFATE
  7. MULTIVITAMIN [Concomitant]
     Active Substance: VITAMINS

REACTIONS (2)
  - Drug dose omission [None]
  - Hospitalisation [None]
